FAERS Safety Report 20767617 (Version 1)
Quarter: 2022Q2

REPORT INFORMATION
  Report Type: Report from Study
  Country: IT (occurrence: IT)
  Receive Date: 20220429
  Receipt Date: 20220429
  Transmission Date: 20220720
  Serious: Yes (Hospitalization)
  Sender: FDA-Public Use
  Company Number: None

PATIENT
  Age: 1 Year
  Sex: Male
  Weight: 11 kg

DRUGS (3)
  1. CYCLOPHOSPHAMIDE [Suspect]
     Active Substance: CYCLOPHOSPHAMIDE
     Indication: Rhabdoid tumour
     Route: 042
     Dates: start: 20220322, end: 20220322
  2. VINCRISTINE SULFATE [Concomitant]
     Active Substance: VINCRISTINE SULFATE
     Indication: Rhabdoid tumour
     Route: 042
     Dates: start: 20220322, end: 20220322
  3. DOXORUBICIN HYDROCHLORIDE [Concomitant]
     Active Substance: DOXORUBICIN HYDROCHLORIDE
     Indication: Rhabdoid tumour
     Dosage: STRENGTH: 50 MG/25 ML
     Route: 042
     Dates: start: 20220322, end: 20220324

REACTIONS (4)
  - Oral mucosal erythema [Unknown]
  - Anaemia [Unknown]
  - Febrile neutropenia [Unknown]
  - Oral pain [Unknown]

NARRATIVE: CASE EVENT DATE: 20220331
